FAERS Safety Report 18570364 (Version 1)
Quarter: 2020Q4

REPORT INFORMATION
  Report Type: Report from Study
  Country: PL (occurrence: PL)
  Receive Date: 20201202
  Receipt Date: 20201202
  Transmission Date: 20210114
  Serious: Yes (Life-Threatening, Other)
  Sender: FDA-Public Use
  Company Number: PL-GW PHARMA-201803PLGW0156

PATIENT

DRUGS (4)
  1. SABRIL [Concomitant]
     Active Substance: VIGABATRIN
     Indication: EPILEPSY
     Dosage: 1000 MILLIGRAM, TID
     Route: 048
     Dates: start: 2011
  2. DEPAKINE CHRONO [Concomitant]
     Active Substance: VALPROATE SODIUM
     Indication: EPILEPSY
     Dosage: 500 MILLIGRAM, BID
     Route: 048
     Dates: start: 2012
  3. VIMPAT [Concomitant]
     Active Substance: LACOSAMIDE
     Indication: EPILEPSY
     Dosage: 200 MILLIGRAM, BID
     Route: 048
     Dates: start: 2017
  4. EPIDIOLEX [Suspect]
     Active Substance: CANNABIDIOL
     Indication: TUBEROUS SCLEROSIS COMPLEX
     Dosage: 50 MG/KG, 2690 MILLIGRAM, QD
     Route: 048
     Dates: start: 20180219, end: 20180228

REACTIONS (2)
  - Rash macular [Recovered/Resolved]
  - Angioedema [Recovered/Resolved]

NARRATIVE: CASE EVENT DATE: 20180228
